FAERS Safety Report 20769415 (Version 1)
Quarter: 2022Q2

REPORT INFORMATION
  Report Type: Spontaneous
  Country: US (occurrence: None)
  Receive Date: 20220428
  Receipt Date: 20220428
  Transmission Date: 20220721
  Serious: Yes (Life-Threatening)
  Sender: FDA-Public Use
  Company Number: None

PATIENT
  Sex: Male
  Weight: 74.8 kg

DRUGS (2)
  1. DEVICE [Suspect]
     Active Substance: DEVICE
  2. NOREPINEPHRINE [Suspect]
     Active Substance: NOREPINEPHRINE

REACTIONS (3)
  - Device malfunction [None]
  - Hypertension [None]
  - Circulatory collapse [None]

NARRATIVE: CASE EVENT DATE: 20220426
